FAERS Safety Report 5693605-1 (Version None)
Quarter: 2008Q2

REPORT INFORMATION
  Report Type: 
  Country: None (occurrence: None)
  Receive Date: 20080328
  Receipt Date: 20071108
  Transmission Date: 20081010
  Serious: Yes (Other)
  Sender: FDA-Public Use
  Company Number: US-WYE-H01147007

PATIENT
  Age: 50 Year
  Sex: Female
  Weight: 59.93 kg

DRUGS (2)
  1. PROTONIX [Suspect]
     Indication: GASTRIC ULCER
     Dosage: 40 MG 1X PER 1 DAY, ORAL; 80 MG 1X PER 1 DAY, ORAL
     Route: 048
     Dates: start: 20070701, end: 20070101
  2. PROTONIX [Suspect]
     Indication: GASTRIC ULCER
     Dosage: 40 MG 1X PER 1 DAY, ORAL; 80 MG 1X PER 1 DAY, ORAL
     Route: 048
     Dates: start: 20070101, end: 20070801

REACTIONS (1)
  - THROMBOCYTOPENIA [None]
